FAERS Safety Report 21452912 (Version 2)
Quarter: 2022Q4

REPORT INFORMATION
  Report Type: Report from Study
  Country: CN (occurrence: None)
  Receive Date: 20221013
  Receipt Date: 20221028
  Transmission Date: 20230113
  Serious: Yes (Other)
  Sender: FDA-Public Use
  Company Number: CN-ROCHE-3175585

PATIENT
  Age: 75 Year
  Sex: Male
  Weight: 54 kg

DRUGS (3)
  1. ATEZOLIZUMAB [Suspect]
     Active Substance: ATEZOLIZUMAB
     Indication: Small cell lung cancer extensive stage
     Dosage: LAST DATE OF ATEZOLIZUMAB ADMINISTERED: 03/AUG/2022?THERAPY RESTARTED ON 15/SEP/2022
     Route: 041
     Dates: start: 20210310
  2. CARBOPLATIN [Suspect]
     Active Substance: CARBOPLATIN
     Indication: Small cell lung cancer extensive stage
     Dosage: LAST DATE OF CARBOPLATIN ADMINISTERED: 14/MAY/2021
     Route: 042
     Dates: start: 20210310
  3. ETOPOSIDE [Suspect]
     Active Substance: ETOPOSIDE
     Indication: Small cell lung cancer extensive stage
     Dosage: LAST DATE OF ETOPOSIDE ADMINISTRATION: 16/MAY/2021
     Route: 042
     Dates: start: 20210310

REACTIONS (1)
  - Sinus bradycardia [Recovering/Resolving]

NARRATIVE: CASE EVENT DATE: 20220901
